FAERS Safety Report 16963183 (Version 1)
Quarter: 2019Q4

REPORT INFORMATION
  Report Type: Spontaneous
  Country: US (occurrence: US)
  Receive Date: 20190908
  Receipt Date: 20190908
  Transmission Date: 20200122
  Serious: No
  Sender: FDA-Public Use
  Company Number: None

PATIENT
  Age: 63 Year
  Sex: Female
  Weight: 79.38 kg

DRUGS (6)
  1. EYE PROMISE [Concomitant]
  2. COQ10 [Concomitant]
     Active Substance: UBIDECARENONE
  3. CALCIUM CITRATE [Concomitant]
     Active Substance: CALCIUM CITRATE
  4. XIFAXAN [Suspect]
     Active Substance: RIFAXIMIN
     Indication: IRRITABLE BOWEL SYNDROME
     Dosage: ?          QUANTITY:1 PILL;?
     Route: 048
     Dates: start: 20190829, end: 20190830
  5. MULTI-VIT [Concomitant]
     Active Substance: VITAMINS
  6. VIT D [Concomitant]
     Active Substance: VITAMIN D NOS

REACTIONS (2)
  - Pruritus [None]
  - Rash [None]

NARRATIVE: CASE EVENT DATE: 20190829
